FAERS Safety Report 8960128 (Version 2)
Quarter: 2012Q4

REPORT INFORMATION
  Report Type: 
  Country: JP (occurrence: JP)
  Receive Date: 20121211
  Receipt Date: 20121217
  Transmission Date: 20130627
  Serious: Yes (Hospitalization)
  Sender: FDA-Public Use
  Company Number: JP-GLAXOSMITHKLINE-B0850958A

PATIENT
  Age: 79 Year
  Sex: Female

DRUGS (8)
  1. REQUIP [Suspect]
     Indication: PARKINSON^S DISEASE
     Dosage: 8MG Per day
     Route: 048
     Dates: start: 20121201
  2. REQUIP [Concomitant]
     Indication: PARKINSON^S DISEASE
     Route: 048
     Dates: end: 201211
  3. LIPITOR [Concomitant]
     Route: 048
  4. NU-LOTAN [Concomitant]
     Route: 048
  5. FUROSEMIDE [Concomitant]
     Route: 065
  6. UNKNOWN DRUG [Concomitant]
     Route: 048
  7. MENESIT [Concomitant]
     Route: 048
  8. DOPS (JAPAN) [Concomitant]
     Route: 048

REACTIONS (4)
  - Melaena [Recovered/Resolved]
  - Duodenal ulcer [Recovered/Resolved]
  - Anaemia [Recovered/Resolved]
  - Haemoglobin decreased [Recovered/Resolved]
